FAERS Safety Report 8237339-8 (Version None)
Quarter: 2012Q1

REPORT INFORMATION
  Report Type: 
  Country: None (occurrence: None)
  Receive Date: 20120327
  Receipt Date: 20120319
  Transmission Date: 20120608
  Serious: Yes (Hospitalization, Other)
  Sender: FDA-Public Use
  Company Number: US-BAYER-2011-016827

PATIENT
  Age: 30 Year
  Sex: Female
  Weight: 76 kg

DRUGS (10)
  1. LEVAQUIN [Concomitant]
     Dosage: UNK
     Dates: start: 20030901
  2. LOVENOX [Concomitant]
     Indication: THROMBOSIS PROPHYLAXIS
  3. ADVAIR DISKUS 100/50 [Concomitant]
     Indication: ASTHMA
     Dosage: UNK
     Dates: start: 20031001
  4. ADVAIR DISKUS 100/50 [Concomitant]
     Indication: DYSPNOEA
  5. NAPROXEN (ALEVE) [Concomitant]
     Dosage: UNK
     Dates: start: 19910101
  6. YASMIN [Suspect]
     Indication: PRODUCT USED FOR UNKNOWN INDICATION
     Dosage: UNK
     Dates: start: 20021008, end: 20031021
  7. SINGULAIR [Concomitant]
     Indication: DYSPNOEA
     Dosage: UNK
     Dates: start: 20031001
  8. SINGULAIR [Concomitant]
     Indication: ASTHMA
  9. NAPROXEN SODIUM AND PSEUDOEPHEDRINE HYDROCHLORIDE [Concomitant]
     Dosage: UNK
     Dates: start: 19910101
  10. PREVACID [Concomitant]
     Dosage: UNK
     Dates: start: 20031001

REACTIONS (9)
  - FEELING HOT [None]
  - CHOLECYSTECTOMY [None]
  - CHEST PAIN [None]
  - PAIN [None]
  - PULMONARY EMBOLISM [None]
  - DYSPNOEA [None]
  - COUGH [None]
  - PAIN IN EXTREMITY [None]
  - INJURY [None]
